FAERS Safety Report 8954527 (Version 1)
Quarter: 2012Q4

REPORT INFORMATION
  Report Type: 
  Country: JP (occurrence: JP)
  Receive Date: 20121209
  Receipt Date: 20121209
  Transmission Date: 20130627
  Serious: No
  Sender: FDA-Public Use
  Company Number: JP-009507513-1203USA03481

PATIENT
  Age: 48 Year
  Sex: Female

DRUGS (15)
  1. FOSAPREPITANT DIMEGLUMINE [Suspect]
     Indication: PROPHYLAXIS OF NAUSEA AND VOMITING
     Dosage: 150 mg, qd
     Route: 042
     Dates: start: 20120117, end: 20120117
  2. FOSAPREPITANT DIMEGLUMINE [Suspect]
     Dosage: 150 mg, qd
     Route: 042
     Dates: start: 20120207, end: 20120207
  3. FOSAPREPITANT DIMEGLUMINE [Suspect]
     Dosage: 150 mg, qd
     Route: 042
     Dates: start: 20120321, end: 20120321
  4. DOXORUBICIN HYDROCHLORIDE [Concomitant]
     Indication: BREAST CANCER
     Dosage: UNK
     Dates: start: 20120117
  5. DOXORUBICIN HYDROCHLORIDE [Concomitant]
     Dosage: UNK
     Dates: start: 20120207
  6. DOXORUBICIN HYDROCHLORIDE [Concomitant]
     Dosage: UNK
     Dates: start: 20120321
  7. ENDOXAN [Concomitant]
     Dosage: UNK
     Dates: start: 20120117
  8. ENDOXAN [Concomitant]
     Dosage: UNK
     Dates: start: 20120207
  9. ENDOXAN [Concomitant]
     Dosage: UNK
     Dates: start: 20120321
  10. ALOXI [Concomitant]
     Dosage: UNK
     Dates: start: 20120117
  11. ALOXI [Concomitant]
     Dosage: UNK
     Dates: start: 20120207
  12. ALOXI [Concomitant]
     Dosage: UNK
     Dates: start: 20120321
  13. DECADRON (DEXAMETHASONE SODIUM PHOSPHATE) [Concomitant]
     Dosage: UNK
     Dates: start: 20120117
  14. DECADRON (DEXAMETHASONE SODIUM PHOSPHATE) [Concomitant]
     Dosage: UNK
     Dates: start: 20120207
  15. DECADRON (DEXAMETHASONE SODIUM PHOSPHATE) [Concomitant]
     Dosage: UNK
     Dates: start: 20120321

REACTIONS (3)
  - Injection site pain [Recovered/Resolved]
  - Injection site phlebitis [Recovered/Resolved]
  - Injection site induration [Recovered/Resolved]
